FAERS Safety Report 4642599-6 (Version None)
Quarter: 2005Q2

REPORT INFORMATION
  Report Type: 
  Country: None (occurrence: None)
  Receive Date: 20050420
  Receipt Date: 20050412
  Transmission Date: 20051028
  Serious: Yes (Hospitalization)
  Sender: FDA-Public Use
  Company Number: FRWYE579212APR05

PATIENT
  Age: 65 Year
  Sex: Male

DRUGS (10)
  1. RAPAMUNE [Suspect]
     Indication: PROPHYLAXIS AGAINST TRANSPLANT REJECTION
     Dosage: 5 MG 1C PER 1 DAY, ORAL
     Route: 048
     Dates: start: 20050301, end: 20050411
  2. CELLCEPT [Concomitant]
  3. IMOVANE (ZOPLICLONE) [Concomitant]
  4. TENORMIN [Concomitant]
  5. FERROUS SULFATE TAB [Concomitant]
  6. BACTRIM [Concomitant]
  7. FUROSEMIDE [Concomitant]
  8. XATRAL (ALFUZOSIN) [Concomitant]
  9. PREVISCAN (FLUINDIONE) [Concomitant]
  10. PREDNISOLONE [Concomitant]

REACTIONS (3)
  - DRUG LEVEL ABOVE THERAPEUTIC [None]
  - MANIA [None]
  - PERSECUTORY DELUSION [None]
